FAERS Safety Report 13568009 (Version 1)
Quarter: 2017Q2

REPORT INFORMATION
  Report Type: Spontaneous
  Country: US (occurrence: US)
  Receive Date: 20170522
  Receipt Date: 20170522
  Transmission Date: 20170830
  Serious: Yes (Life-Threatening, Hospitalization)
  Sender: FDA-Public Use
  Company Number: US-BAYER-2017-095919

PATIENT
  Age: 67 Year
  Sex: Male

DRUGS (2)
  1. ACETYLSALICYLIC ACID (} 100 MG) [Suspect]
     Active Substance: ASPIRIN
     Dosage: 325 MG, QD
  2. PLAVIX [Suspect]
     Active Substance: CLOPIDOGREL BISULFATE
     Dosage: 75 MG, QD

REACTIONS (5)
  - Labelled drug-drug interaction medication error [None]
  - Haemoglobin decreased [None]
  - Haematoma [None]
  - Drug administration error [None]
  - Local swelling [None]
